FAERS Safety Report 8302615-7 (Version None)
Quarter: 2012Q1

REPORT INFORMATION
  Report Type: 
  Country: None (occurrence: None)
  Receive Date: 20120326
  Receipt Date: 20111011
  Transmission Date: 20120608
  Serious: Yes (Other)
  Sender: FDA-Public Use
  Company Number: PHHY2011US20347

PATIENT
  Age: 39 Year
  Sex: Male
  Weight: 96 kg

DRUGS (7)
  1. TASIGNA [Suspect]
     Indication: CHRONIC MYELOID LEUKAEMIA
     Dosage: 400 MG, BID, ORAL ; 400 MG PER DAY, ORAL
     Route: 048
     Dates: start: 20110331
  2. TASIGNA [Suspect]
     Indication: CHRONIC MYELOID LEUKAEMIA
     Dosage: 400 MG, BID, ORAL ; 400 MG PER DAY, ORAL
     Route: 048
     Dates: start: 20110121
  3. TASIGNA [Suspect]
     Dosage: 150 MG, BID, ORAL
     Route: 048
     Dates: start: 20110125
  4. SINGULAIR [Concomitant]
  5. AMBIEN [Concomitant]
  6. ALBUTEROL [Concomitant]
  7. ADVAIR HFA [Concomitant]

REACTIONS (7)
  - HEPATIC ENZYME INCREASED [None]
  - ALANINE AMINOTRANSFERASE INCREASED [None]
  - BLOOD BILIRUBIN INCREASED [None]
  - MUSCLE SPASMS [None]
  - ACNE [None]
  - MYALGIA [None]
  - ASPARTATE AMINOTRANSFERASE INCREASED [None]
